FAERS Safety Report 25813881 (Version 1)
Quarter: 2025Q3

REPORT INFORMATION
  Report Type: Spontaneous
  Country: US (occurrence: US)
  Receive Date: 20250917
  Receipt Date: 20250917
  Transmission Date: 20251020
  Serious: Yes (Hospitalization)
  Sender: SANOFI AVENTIS
  Company Number: US-SA-2025SA278381

PATIENT
  Sex: Female
  Weight: 79.09 kg

DRUGS (17)
  1. DUPIXENT [Suspect]
     Active Substance: DUPILUMAB
     Indication: Dermatitis atopic
     Dosage: 300 MG, Q3W
     Route: 058
  2. IRON [Concomitant]
     Active Substance: IRON
  3. HERBALS\TURMERIC [Concomitant]
     Active Substance: HERBALS\TURMERIC
  4. MAGNESIUM [Concomitant]
     Active Substance: MAGNESIUM
  5. ZINC [Concomitant]
     Active Substance: ZINC
  6. VITAMIN C [Concomitant]
     Active Substance: ASCORBIC ACID
  7. VITAMIN D2 [Concomitant]
     Active Substance: ERGOCALCIFEROL
  8. VITAMIN B12 [Concomitant]
     Active Substance: CYANOCOBALAMIN
  9. SOMATULINE DEPOT [Concomitant]
     Active Substance: LANREOTIDE ACETATE
  10. FUROSEMIDE [Concomitant]
     Active Substance: FUROSEMIDE
  11. ATORVASTATIN CALCIUM [Concomitant]
     Active Substance: ATORVASTATIN CALCIUM
  12. AMLODIPINE BESYLATE [Concomitant]
     Active Substance: AMLODIPINE BESYLATE
  13. GABAPENTIN [Concomitant]
     Active Substance: GABAPENTIN
  14. ELIQUIS [Concomitant]
     Active Substance: APIXABAN
  15. METOPROLOL TARTRATE [Concomitant]
     Active Substance: METOPROLOL TARTRATE
  16. DILTIAZEM HYDROCHLORIDE [Concomitant]
     Active Substance: DILTIAZEM HYDROCHLORIDE
  17. LANREOTIDE ACETATE [Concomitant]
     Active Substance: LANREOTIDE ACETATE

REACTIONS (2)
  - COVID-19 [Unknown]
  - Inappropriate schedule of product administration [Unknown]
